FAERS Safety Report 19378674 (Version 1)
Quarter: 2021Q2

REPORT INFORMATION
  Report Type: Report from Study
  Country: IT (occurrence: IT)
  Receive Date: 20210606
  Receipt Date: 20210606
  Transmission Date: 20210717
  Serious: Yes (Death)
  Sender: FDA-Public Use
  Company Number: IT-TEVA-2021-IT-1895338

PATIENT
  Age: 74 Year
  Sex: Male
  Weight: 80 kg

DRUGS (3)
  1. ACETYLSALICYLIC ACID [Suspect]
     Active Substance: ASPIRIN
     Indication: CARDIOVASCULAR EVENT PROPHYLAXIS
     Dosage: 1 DOSAGE FORMS
     Route: 048
  2. BRILIQUE 60 MG FILM?COATED TABLETS [Interacting]
     Active Substance: TICAGRELOR
     Indication: THROMBOSIS PROPHYLAXIS
     Dosage: 1 DOSAGE FORMS
     Route: 048
  3. ENOXAPARIN SODIUM. [Suspect]
     Active Substance: ENOXAPARIN SODIUM
     Indication: CORONAVIRUS INFECTION
     Dosage: 1 DOSAGE FORMS
     Route: 058
     Dates: end: 20210218

REACTIONS (5)
  - Drug interaction [Fatal]
  - Haemoptysis [Fatal]
  - Melaena [Fatal]
  - Anaemia [Fatal]
  - Off label use [Fatal]

NARRATIVE: CASE EVENT DATE: 20210116
